FAERS Safety Report 20921847 (Version 1)
Quarter: 2022Q2

REPORT INFORMATION
  Report Type: Spontaneous
  Country: HK (occurrence: HK)
  Receive Date: 20220606
  Receipt Date: 20220606
  Transmission Date: 20220721
  Serious: Yes (Other)
  Sender: FDA-Public Use
  Company Number: HK-STRIDES ARCOLAB LIMITED-2022SP006613

PATIENT
  Age: 18 Year
  Sex: Male

DRUGS (3)
  1. CARBOPLATIN [Suspect]
     Active Substance: CARBOPLATIN
     Indication: Intracranial germ cell tumour
     Dosage: 600 MILLIGRAM/SQ. METER PER DAY
     Route: 065
  2. CARBOPLATIN [Suspect]
     Active Substance: CARBOPLATIN
     Dosage: TOTAL 36 CYCLES OF CARBOPLATIN WERE ADMINISTERED AFTER THE INDUCTION CYCLE
     Route: 065
  3. ETOPOSIDE [Suspect]
     Active Substance: ETOPOSIDE
     Indication: Intracranial germ cell tumour
     Dosage: 150 MILLIGRAM/SQ. METER, PER DAY CYCLICAL (INDUCTION THERAPY)
     Route: 065

REACTIONS (2)
  - Renal salt-wasting syndrome [Recovered/Resolved]
  - Off label use [Unknown]
